FAERS Safety Report 9934426 (Version 3)
Quarter: 2014Q2

REPORT INFORMATION
  Report Type: Spontaneous
  Country: US (occurrence: US)
  Receive Date: 20140228
  Receipt Date: 20140407
  Transmission Date: 20141212
  Serious: No
  Sender: FDA-Public Use
  Company Number: US-B.I. PHARMACEUTICALS,INC./RIDGEFIELD-2014-BI-08573BP

PATIENT
  Age: 65 Year
  Sex: Female

DRUGS (3)
  1. SPIRIVA [Suspect]
     Indication: INTERSTITIAL LUNG DISEASE
     Dosage: 18 MCG
     Route: 055
     Dates: start: 2007
  2. CELCEPT [Concomitant]
     Indication: INTERSTITIAL LUNG DISEASE
     Route: 065
  3. UNSPECIFIED ANTIHYPERTENSION [Concomitant]
     Indication: HYPERTENSION
     Route: 065

REACTIONS (4)
  - Drug ineffective [Not Recovered/Not Resolved]
  - Off label use [Not Recovered/Not Resolved]
  - Product quality issue [Recovered/Resolved]
  - Product quality issue [Recovered/Resolved]
